FAERS Safety Report 23736030 (Version 1)
Quarter: 2024Q2

REPORT INFORMATION
  Report Type: Spontaneous
  Country: JP (occurrence: JP)
  Receive Date: 20240412
  Receipt Date: 20240412
  Transmission Date: 20240716
  Serious: Yes (Hospitalization, Other)
  Sender: FDA-Public Use
  Company Number: JP-CHUGAI-2024007324AA

PATIENT
  Age: 87 Year
  Sex: Female
  Weight: 56.5 kg

DRUGS (7)
  1. ALECENSA [Suspect]
     Active Substance: ALECTINIB HYDROCHLORIDE
     Indication: Lung adenocarcinoma
     Dosage: 300 MILLIGRAM, BID
     Route: 065
     Dates: start: 20231113, end: 20231214
  2. ALECENSA [Suspect]
     Active Substance: ALECTINIB HYDROCHLORIDE
     Dosage: 150 MILLIGRAM, BID
     Route: 065
     Dates: start: 20231221, end: 20240123
  3. ALECENSA [Suspect]
     Active Substance: ALECTINIB HYDROCHLORIDE
     Dosage: 300 MILLIGRAM, BID
     Route: 065
     Dates: start: 20240124, end: 20240304
  4. BROTIZOLAM [Concomitant]
     Active Substance: BROTIZOLAM
     Dosage: 0.25 MILLIGRAM, HS
  5. LEVOTHYROXINE SODIUM [Concomitant]
     Active Substance: LEVOTHYROXINE SODIUM
     Dosage: UNK
  6. AMLODIPINE BESYLATE [Concomitant]
     Active Substance: AMLODIPINE BESYLATE
     Dosage: UNK
  7. LANSOPRAZOLE [Concomitant]
     Active Substance: LANSOPRAZOLE
     Dosage: 1 TAB

REACTIONS (4)
  - Pleural effusion [Unknown]
  - Anaemia [Recovered/Resolved]
  - Generalised oedema [Unknown]
  - Renal disorder [Recovered/Resolved]

NARRATIVE: CASE EVENT DATE: 20231120
